FAERS Safety Report 25884392 (Version 1)
Quarter: 2025Q4

REPORT INFORMATION
  Report Type: Spontaneous
  Country: US (occurrence: None)
  Receive Date: 20251006
  Receipt Date: 20251006
  Transmission Date: 20260118
  Serious: Yes (Death, Disabling)
  Sender: FDA-CTU
  Company Number: None

PATIENT
  Age: 17 Day
  Sex: Male
  Weight: 74.25 kg

DRUGS (4)
  1. ACCUTANE [Suspect]
     Active Substance: ISOTRETINOIN
     Dosage: FREQUENCY : DAILY;?
     Route: 048
     Dates: start: 20231204
  2. ACCUTANE [Suspect]
     Active Substance: ISOTRETINOIN
     Indication: Acne cystic
     Dosage: FREQUENCY : DAILY;?
     Route: 048
     Dates: start: 20231204
  3. ACCUTANE [Concomitant]
     Active Substance: ISOTRETINOIN
     Dates: start: 20231204, end: 20231224
  4. ACCUTANE [Concomitant]
     Active Substance: ISOTRETINOIN
     Dates: start: 20231204, end: 20231224

REACTIONS (3)
  - Psychotic disorder [None]
  - Aggression [None]
  - Homicide [None]

NARRATIVE: CASE EVENT DATE: 20231223
